FAERS Safety Report 12670929 (Version 1)
Quarter: 2016Q3

REPORT INFORMATION
  Report Type: Spontaneous
  Country: US (occurrence: US)
  Receive Date: 20160822
  Receipt Date: 20160822
  Transmission Date: 20161109
  Serious: No
  Sender: FDA-Public Use
  Company Number: US-JAZZ-2016-US-006021

PATIENT
  Sex: Female

DRUGS (11)
  1. NORTRIPTYLINE HCL [Concomitant]
     Active Substance: NORTRIPTYLINE HYDROCHLORIDE
  2. ROPINIROLE HCL [Concomitant]
     Active Substance: ROPINIROLE HYDROCHLORIDE
  3. CHANTIX [Concomitant]
     Active Substance: VARENICLINE TARTRATE
  4. XYREM [Suspect]
     Active Substance: SODIUM OXYBATE
     Indication: NARCOLEPSY
     Dosage: 2.25 G, BID
     Route: 048
     Dates: start: 201505, end: 201506
  5. NUVIGIL [Concomitant]
     Active Substance: ARMODAFINIL
  6. MULTIVITAMINS [Concomitant]
     Active Substance: VITAMINS
  7. XYREM [Suspect]
     Active Substance: SODIUM OXYBATE
     Dosage: 3 G, BID
     Route: 048
     Dates: start: 201506
  8. SIMVASTATIN. [Concomitant]
     Active Substance: SIMVASTATIN
  9. CELEXA [Concomitant]
     Active Substance: CITALOPRAM HYDROBROMIDE
  10. ADVIL [Concomitant]
     Active Substance: IBUPROFEN
  11. XANAX [Concomitant]
     Active Substance: ALPRAZOLAM

REACTIONS (4)
  - Diarrhoea [Unknown]
  - Dark circles under eyes [Unknown]
  - Nausea [Unknown]
  - Tremor [Unknown]
